FAERS Safety Report 13619899 (Version 1)
Quarter: 2017Q2

REPORT INFORMATION
  Report Type: Report from Study
  Country: US (occurrence: US)
  Receive Date: 20170606
  Receipt Date: 20170606
  Transmission Date: 20170830
  Serious: No
  Sender: FDA-Public Use
  Company Number: GXBR2017US001629

PATIENT
  Sex: Male

DRUGS (2)
  1. OMNITROPE [Suspect]
     Active Substance: SOMATROPIN
     Indication: HYPOPITUITARISM
     Dosage: 0.5 MG, QD
     Route: 058
     Dates: start: 201502, end: 20170426
  2. OMNITROPE [Suspect]
     Active Substance: SOMATROPIN
     Dosage: 0.7 MG, QD
     Route: 058
     Dates: start: 20170426

REACTIONS (5)
  - Pain [Recovered/Resolved]
  - Hypoglycaemia [Unknown]
  - Vitamin D deficiency [Unknown]
  - Fatigue [Recovered/Resolved]
  - Insulin-like growth factor decreased [Unknown]
